FAERS Safety Report 6747785-7 (Version None)
Quarter: 2010Q2

REPORT INFORMATION
  Report Type: 
  Country: None (occurrence: None)
  Receive Date: 20100528
  Receipt Date: 20100513
  Transmission Date: 20101027
  Serious: Yes (Other)
  Sender: FDA-Public Use
  Company Number: BH-GENENTECH-301999

PATIENT
  Age: 63 Year
  Sex: Male

DRUGS (1)
  1. MABTHERA [Suspect]
     Indication: CHRONIC LYMPHOCYTIC LEUKAEMIA
     Dosage: 375 MG/M2, 1/WEEK
     Route: 042
     Dates: start: 20100429, end: 20100429

REACTIONS (4)
  - CHEST DISCOMFORT [None]
  - HYPOTENSION [None]
  - HYPOVOLAEMIC SHOCK [None]
  - WHEEZING [None]
